FAERS Safety Report 7620173-7 (Version None)
Quarter: 2011Q3

REPORT INFORMATION
  Report Type: 
  Country: None (occurrence: None)
  Receive Date: 20110719
  Receipt Date: 20110707
  Transmission Date: 20111222
  Serious: No
  Sender: FDA-Public Use
  Company Number: US-JNJFOC-20110703533

PATIENT
  Sex: Female

DRUGS (3)
  1. INVEGA SUSTENNA [Suspect]
     Indication: SCHIZOPHRENIA
     Route: 030
  2. INVEGA SUSTENNA [Suspect]
     Route: 030
     Dates: start: 20110101
  3. INVEGA [Suspect]
     Indication: SCHIZOPHRENIA
     Dosage: 3MG X 2TABS
     Route: 048
     Dates: start: 20110101

REACTIONS (1)
  - THERAPEUTIC RESPONSE DECREASED [None]
